FAERS Safety Report 23279776 (Version 3)
Quarter: 2025Q1

REPORT INFORMATION
  Report Type: Spontaneous
  Country: US (occurrence: US)
  Receive Date: 20231209
  Receipt Date: 20250318
  Transmission Date: 20250409
  Serious: No
  Sender: SANOFI AVENTIS
  Company Number: US-SA-SAC20231204000317

PATIENT
  Age: 67 Year
  Sex: Female
  Weight: 49.887 kg

DRUGS (19)
  1. DUPIXENT [Suspect]
     Active Substance: DUPILUMAB
     Indication: Dermatitis atopic
     Dosage: 300 MG, QOW
     Route: 058
  2. CEFDINIR [Concomitant]
     Active Substance: CEFDINIR
  3. ARIPIPRAZOLE [Concomitant]
     Active Substance: ARIPIPRAZOLE
  4. CLONAZEPAM [Concomitant]
     Active Substance: CLONAZEPAM
  5. CYCLOSPORINE [Concomitant]
     Active Substance: CYCLOSPORINE
  6. MEMANTINE [Concomitant]
     Active Substance: MEMANTINE
  7. GABAPENTIN [Concomitant]
     Active Substance: GABAPENTIN
  8. MONTELUKAST SODIUM [Concomitant]
     Active Substance: MONTELUKAST SODIUM
  9. TERCONAZOLE [Concomitant]
     Active Substance: TERCONAZOLE
  10. ALBUTEROL SULFATE [Concomitant]
     Active Substance: ALBUTEROL SULFATE
  11. FLUTICASONE FUROATE\SALMETEROL XINAFOATE [Concomitant]
     Active Substance: FLUTICASONE FUROATE\SALMETEROL XINAFOATE
  12. ADVAIR HFA [Concomitant]
     Active Substance: FLUTICASONE PROPIONATE\SALMETEROL XINAFOATE
  13. TRELEGY ELLIPTA [Concomitant]
     Active Substance: FLUTICASONE FUROATE\UMECLIDINIUM BROMIDE\VILANTEROL TRIFENATATE
  14. AKLIEF [Concomitant]
     Active Substance: TRIFAROTENE
  15. PREDNISONE [Concomitant]
     Active Substance: PREDNISONE
  16. VEOZAH [Concomitant]
     Active Substance: FEZOLINETANT
  17. FUROSEMIDE [Concomitant]
     Active Substance: FUROSEMIDE
  18. SERTRALINE HYDROCHLORIDE [Concomitant]
     Active Substance: SERTRALINE HYDROCHLORIDE
  19. COLCHICINE [Concomitant]
     Active Substance: COLCHICINE

REACTIONS (2)
  - Lacrimation increased [Unknown]
  - Pruritus [Not Recovered/Not Resolved]
